FAERS Safety Report 7565902-6 (Version None)
Quarter: 2011Q2

REPORT INFORMATION
  Report Type: 
  Country: None (occurrence: None)
  Receive Date: 20110623
  Receipt Date: 20110620
  Transmission Date: 20111010
  Serious: Yes (Death, Other)
  Sender: FDA-Public Use
  Company Number: US-AMGEN-USASP2011031654

PATIENT
  Age: 86 Year
  Sex: Female

DRUGS (2)
  1. RITUXIMAB [Concomitant]
  2. NPLATE [Suspect]
     Indication: IDIOPATHIC THROMBOCYTOPENIC PURPURA
     Dates: start: 20110512

REACTIONS (2)
  - CARDIAC DISORDER [None]
  - MYELODYSPLASTIC SYNDROME [None]
